FAERS Safety Report 8421942-6 (Version None)
Quarter: 2012Q2

REPORT INFORMATION
  Report Type: 
  Country: None (occurrence: None)
  Receive Date: 20120608
  Receipt Date: 20120531
  Transmission Date: 20120825
  Serious: Yes (Hospitalization, Other)
  Sender: FDA-Public Use
  Company Number: PHHY2012CH047634

PATIENT
  Sex: Male

DRUGS (5)
  1. DIGOXIN [Suspect]
     Dosage: 0.25 MG, DAILY
     Route: 048
     Dates: end: 20120206
  2. RAMIPRIL [Suspect]
     Dosage: 2.5 MG, DAILY
     Dates: end: 20120206
  3. METFORMIN HCL [Concomitant]
     Dates: end: 20120206
  4. CRESTOR [Concomitant]
     Dosage: UNK
  5. PANTOPRAZOLE [Concomitant]
     Dosage: UNK

REACTIONS (7)
  - RENAL FAILURE CHRONIC [None]
  - NAUSEA [None]
  - BLOOD SODIUM DECREASED [None]
  - BLOOD POTASSIUM DECREASED [None]
  - VOMITING [None]
  - DEHYDRATION [None]
  - TOXICITY TO VARIOUS AGENTS [None]
